FAERS Safety Report 9473521 (Version 1)
Quarter: 2013Q3

REPORT INFORMATION
  Report Type: Spontaneous
  Country: US (occurrence: US)
  Receive Date: 20130823
  Receipt Date: 20130823
  Transmission Date: 20140515
  Serious: No
  Sender: FDA-Public Use
  Company Number: US-GALDERMA-US13000565

PATIENT
  Sex: Female

DRUGS (1)
  1. METROGEL (METRONIDAZOLE) GEL, 1% [Suspect]
     Indication: DERMATITIS
     Dosage: 1%
     Route: 061
     Dates: start: 201204, end: 201204

REACTIONS (5)
  - Swelling face [Recovered/Resolved]
  - Skin exfoliation [Recovered/Resolved]
  - Skin burning sensation [Recovered/Resolved]
  - Erythema [Recovering/Resolving]
  - Off label use [Recovered/Resolved]
